FAERS Safety Report 10108534 (Version 1)
Quarter: 2014Q2

REPORT INFORMATION
  Report Type: Spontaneous
  Country: GB (occurrence: GB)
  Receive Date: 20140425
  Receipt Date: 20140425
  Transmission Date: 20141212
  Serious: Yes (Other)
  Sender: FDA-Public Use
  Company Number: 2014SP002181

PATIENT
  Age: 70 Year
  Sex: 0

DRUGS (7)
  1. CAPECITABINE [Suspect]
     Indication: BREAST CANCER METASTATIC
  2. CAPECITABINE [Suspect]
     Indication: BREAST CANCER METASTATIC
     Dates: end: 20040915
  3. CAPECITABINE [Suspect]
     Indication: BREAST CANCER METASTATIC
     Dates: end: 20041109
  4. CAPECITABINE [Suspect]
     Indication: BREAST CANCER METASTATIC
     Dates: end: 20050216
  5. VINORELBINE [Suspect]
     Indication: BREAST CANCER METASTATIC
     Route: 042
     Dates: end: 20041109
  6. VINORELBINE [Suspect]
     Indication: BREAST CANCER METASTATIC
     Route: 048
  7. CARBOPLATIN [Concomitant]

REACTIONS (2)
  - Gastrointestinal toxicity [Unknown]
  - Haematotoxicity [Unknown]
